FAERS Safety Report 23655494 (Version 2)
Quarter: 2025Q3

REPORT INFORMATION
  Report Type: Report from Study
  Country: US (occurrence: US)
  Receive Date: 20240320
  Receipt Date: 20250701
  Transmission Date: 20251020
  Serious: Yes (Other)
  Sender: ABBVIE
  Company Number: US-ABBVIE-5685182

PATIENT
  Age: 55 Year
  Sex: Male

DRUGS (1)
  1. RINVOQ [Suspect]
     Active Substance: UPADACITINIB
     Indication: Dermatitis atopic
     Route: 048

REACTIONS (2)
  - Spinal operation [Recovered/Resolved]
  - Spinal operation [Recovering/Resolving]

NARRATIVE: CASE EVENT DATE: 20240101
